FAERS Safety Report 9147615 (Version 1)
Quarter: 2013Q1

REPORT INFORMATION
  Report Type: Spontaneous
  Country: US (occurrence: US)
  Receive Date: 20130307
  Receipt Date: 20130307
  Transmission Date: 20140127
  Serious: Yes (Other)
  Sender: FDA-Public Use
  Company Number: US-009507513-1303USA001896

PATIENT
  Sex: Female

DRUGS (8)
  1. MONTELUKAST SODIUM [Suspect]
  2. PREDNISOLONE [Concomitant]
  3. COMBIVENT [Concomitant]
  4. CETIRIZINE HYDROCHLORIDE [Concomitant]
  5. FLUTICASONE PROPIONATE [Concomitant]
  6. PULMICORT [Concomitant]
  7. SYMBICORT [Concomitant]
  8. XOLAIR [Concomitant]

REACTIONS (3)
  - Urinary tract infection [Unknown]
  - Normal newborn [Unknown]
  - Maternal exposure during pregnancy [Unknown]
